FAERS Safety Report 5336754-X (Version None)
Quarter: 2007Q2

REPORT INFORMATION
  Report Type: 
  Country: None (occurrence: None)
  Receive Date: 20070529
  Receipt Date: 20070523
  Transmission Date: 20071010
  Serious: Yes (Other)
  Sender: FDA-Public Use
  Company Number: PHNU2007DE01286

PATIENT
  Age: 80 Year
  Sex: Male

DRUGS (3)
  1. ZOMETA [Suspect]
     Indication: MULTIPLE MYELOMA
     Dosage: 4 MG, QMO
     Dates: start: 20050624, end: 20070221
  2. MELPHALAN [Concomitant]
     Dosage: 15 MG/DAY ON DAY 1
     Route: 065
     Dates: start: 20050701, end: 20060501
  3. PREDNISOLONE [Concomitant]
     Dosage: 60 MG/MA? ON DAY 1-5
     Route: 065

REACTIONS (6)
  - ANTIBIOTIC PROPHYLAXIS [None]
  - JAW OPERATION [None]
  - ORAL SURGERY [None]
  - OSTEONECROSIS [None]
  - OSTEOTOMY [None]
  - TOOTH EXTRACTION [None]
